FAERS Safety Report 11116156 (Version 1)
Quarter: 2015Q2

REPORT INFORMATION
  Report Type: Spontaneous
  Country: US (occurrence: US)
  Receive Date: 20150515
  Receipt Date: 20150515
  Transmission Date: 20150821
  Serious: No
  Sender: FDA-Public Use
  Company Number: US-009507513-1504USA024319

PATIENT
  Age: 35 Year
  Sex: Female
  Weight: 62.13 kg

DRUGS (1)
  1. IMPLANON [Suspect]
     Active Substance: ETONOGESTREL
     Indication: CONTRACEPTION
     Dosage: 1 ROD, UP TO 3 YEARS
     Route: 059
     Dates: start: 20120620

REACTIONS (2)
  - Muscle spasms [Unknown]
  - Vasodilatation [Unknown]

NARRATIVE: CASE EVENT DATE: 20150428
